FAERS Safety Report 5150395-9 (Version None)
Quarter: 2006Q4

REPORT INFORMATION
  Report Type: 
  Country: None (occurrence: None)
  Receive Date: 20061114
  Receipt Date: 20061108
  Transmission Date: 20070319
  Serious: Yes (Death)
  Sender: FDA-Public Use
  Company Number: 2006PK02304

PATIENT
  Age: 71 Year
  Sex: Female

DRUGS (17)
  1. SEROQUEL [Suspect]
     Indication: SCHIZOAFFECTIVE DISORDER
     Route: 048
     Dates: end: 20051118
  2. SEROQUEL [Suspect]
     Route: 048
     Dates: start: 20051219, end: 20051219
  3. SEROQUEL [Suspect]
     Route: 048
     Dates: start: 20051220, end: 20051220
  4. SEROQUEL [Suspect]
     Route: 048
     Dates: start: 20051221, end: 20051221
  5. ZELDOX [Suspect]
     Route: 048
     Dates: start: 20051221, end: 20051221
  6. ZELDOX [Suspect]
     Route: 048
     Dates: start: 20051222
  7. INHIBACE [Suspect]
  8. LASIX [Suspect]
     Route: 048
  9. ESCITALOPRAM OXALATE [Concomitant]
     Route: 048
     Dates: end: 20051220
  10. ESCITALOPRAM OXALATE [Concomitant]
     Route: 048
     Dates: start: 20051221
  11. TRITTICO [Concomitant]
     Route: 048
  12. THYREX [Concomitant]
     Route: 048
  13. LORAZEPAM [Concomitant]
     Route: 048
     Dates: start: 20051201, end: 20051219
  14. LORAZEPAM [Concomitant]
     Route: 048
     Dates: start: 20051220, end: 20051220
  15. LORAZEPAM [Concomitant]
     Route: 048
     Dates: start: 20051221
  16. LOVENOX [Concomitant]
     Route: 048
     Dates: start: 20051118, end: 20051209
  17. LOVENOX [Concomitant]
     Route: 048
     Dates: start: 20051210, end: 20051212

REACTIONS (3)
  - CIRCULATORY COLLAPSE [None]
  - COR PULMONALE [None]
  - PULMONARY EMBOLISM [None]
